FAERS Safety Report 12397112 (Version 3)
Quarter: 2016Q3

REPORT INFORMATION
  Report Type: Spontaneous
  Country: ES (occurrence: ES)
  Receive Date: 20160524
  Receipt Date: 20160719
  Transmission Date: 20161109
  Serious: Yes (Other)
  Sender: FDA-Public Use
  Company Number: ES-AMGEN-ESPSP2016065323

PATIENT
  Age: 72 Year
  Sex: Female

DRUGS (22)
  1. NAPROSYN [Concomitant]
     Active Substance: NAPROXEN
     Indication: PAIN
     Dosage: 500 MG, 2X/DAY (EVERY 12 HOURS)
  2. NAPROSYN [Concomitant]
     Active Substance: NAPROXEN
     Indication: INFLAMMATION
  3. ALENDRONIC ACID [Concomitant]
     Active Substance: ALENDRONIC ACID
     Indication: PROPHYLAXIS
     Dosage: 70 MG, WEEKLY (ON FRIDAYS BEFORE BREAKFAST)
  4. INSULINE LENTE [Concomitant]
     Indication: TYPE 1 DIABETES MELLITUS
     Dosage: 56 IU, DAILY (30 U IN THE MORNINGS; 8 U IN NOON; AND 18 U AT NIGHTS)
  5. INSULINE LENTE [Concomitant]
     Dosage: UNK
     Route: 058
  6. SPIRIVA [Concomitant]
     Active Substance: TIOTROPIUM BROMIDE MONOHYDRATE
     Indication: ASTHMA
  7. METOJECT [Concomitant]
     Active Substance: METHOTREXATE SODIUM
     Indication: POLYARTHRITIS
     Dosage: 1 DF (25MG / 0.5MG), WEEKLY ON MONDAYS
     Route: 058
  8. OMEPRAZOLE MYLAN                   /00661201/ [Concomitant]
     Indication: PROPHYLAXIS
     Dosage: 20 MG, 2X/DAY (EVERY 12 HOURS)
  9. IDEOS [Concomitant]
     Active Substance: CALCIUM CARBONATE\CHOLECALCIFEROL
     Dosage: 1 DF, 2X/DAY (EVERY 12H)
  10. OPTOVITE B12 [Concomitant]
     Active Substance: CYANOCOBALAMIN
     Indication: IMMUNE SYSTEM DISORDER
     Dosage: 1 DF, 2X/WEEK
  11. ENBREL [Suspect]
     Active Substance: ETANERCEPT
     Dosage: 50 MG, WEEKLY (SATURDAYS)
     Route: 058
  12. ACFOL [Concomitant]
     Active Substance: FOLIC ACID
     Dosage: 2 DF, WEEKLY (ON THUSDAYS)
  13. FERROPROTINA                       /00023527/ [Concomitant]
     Indication: IRON DEFICIENCY
     Dosage: 40 MG, 2X/DAY (2 SACHETS IN THE MORNINGS)
  14. ENBREL [Suspect]
     Active Substance: ETANERCEPT
     Indication: RHEUMATOID ARTHRITIS
     Dosage: 50 MG, WEEKLY
     Route: 058
     Dates: start: 20150619
  15. FLUOXETINE [Concomitant]
     Active Substance: FLUOXETINE HYDROCHLORIDE
     Indication: NERVOUSNESS
     Dosage: 20 MG, 1X/DAY (IN THE MORNINGS)
  16. ALPRAZOLAM. [Concomitant]
     Active Substance: ALPRAZOLAM
     Indication: INSOMNIA
     Dosage: 1 G, 1X/DAY (AT NIGHTS)
  17. PROVISACOR [Concomitant]
     Active Substance: ROSUVASTATIN
     Indication: HYPERCHOLESTEROLAEMIA
     Dosage: 20 MG, 1X/DAY (AT NIGHTS)
  18. METFORMIN [Concomitant]
     Active Substance: METFORMIN HYDROCHLORIDE
     Indication: TYPE 1 DIABETES MELLITUS
     Dosage: 1 DF, 1X/DAY (AT NOON)
  19. PREDNISONE. [Concomitant]
     Active Substance: PREDNISONE
     Indication: POLYARTHRITIS
     Dosage: 5 MG, 1X/DAY (IN THE MORNINGS)
  20. INSULINE RAPIDE HP [Concomitant]
     Indication: TYPE 1 DIABETES MELLITUS
     Dosage: UNK, AS NEEDED (IF 180-240 MG/DL 6 U OF RAPID INSULIN; IF 240-300 MG/DL 8 U RAPID INSULIN)
     Route: 058
  21. SPIRIVA [Concomitant]
     Active Substance: TIOTROPIUM BROMIDE MONOHYDRATE
     Indication: FATIGUE
     Dosage: 1 DF, 1X/DAY (AT NIGHT BEFORE GO TO BED)
     Route: 055
  22. EMPORTAL [Concomitant]
     Indication: CONSTIPATION
     Dosage: 1 DF, 1X/DAY (AT NIGHTS)

REACTIONS (6)
  - Weight decreased [Unknown]
  - Blood pressure decreased [Unknown]
  - Fatigue [Unknown]
  - Gastric polyps [Recovering/Resolving]
  - Intestinal polyp [Recovering/Resolving]
  - Blood glucose decreased [Unknown]

NARRATIVE: CASE EVENT DATE: 20160510
